FAERS Safety Report 9147633 (Version 1)
Quarter: 2013Q1

REPORT INFORMATION
  Report Type: Spontaneous
  Country: FR (occurrence: FR)
  Receive Date: 20130307
  Receipt Date: 20130307
  Transmission Date: 20140127
  Serious: Yes (Hospitalization, Other)
  Sender: FDA-Public Use
  Company Number: FR-PFIZER INC-2013072701

PATIENT
  Age: 72 Year
  Sex: Female

DRUGS (18)
  1. ZITHROMAX [Suspect]
     Indication: LUNG DISORDER
     Dosage: 250 MG THRICE WEEKLY
     Route: 048
     Dates: start: 2012
  2. UMULINE [Suspect]
     Indication: TYPE 2 DIABETES MELLITUS
     Dosage: 32 IU, 1X/DAY
     Route: 058
  3. UMULINE [Suspect]
     Dosage: 24 IU, 1X/DAY
  4. IXPRIM [Suspect]
     Indication: BACK PAIN
     Dosage: 3 DF, 1X/DAY
     Route: 048
     Dates: start: 201205
  5. NORSET [Suspect]
     Dosage: UNK
     Route: 048
     Dates: start: 201210
  6. NORSET [Suspect]
     Dosage: 30 MG, 1X/DAY
     Dates: start: 201211
  7. LASILIX [Concomitant]
     Dosage: 40 MG
  8. SYMBICORT TURBUHALER [Concomitant]
  9. PROCORALAN [Concomitant]
  10. INEXIUM [Concomitant]
  11. ATARAX [Concomitant]
  12. EUPHYLLIN [Concomitant]
  13. HYDROCORTISONE [Concomitant]
  14. SERESTA [Concomitant]
  15. PERINDOPRIL [Concomitant]
  16. TRIMEBUTINE [Concomitant]
  17. DIFFU K [Concomitant]
  18. CALCIDOSE [Concomitant]

REACTIONS (2)
  - Hypoglycaemia [Recovered/Resolved]
  - Convulsion [Recovered/Resolved]
